FAERS Safety Report 4539277-0 (Version None)
Quarter: 2004Q4

REPORT INFORMATION
  Report Type: 
  Country: None (occurrence: None)
  Receive Date: 20041222
  Receipt Date: 20041213
  Transmission Date: 20050328
  Serious: Yes (Hospitalization)
  Sender: FDA-Public Use
  Company Number: J081-002-001802

PATIENT
  Age: 61 Year
  Sex: Male

DRUGS (6)
  1. ARICEPT [Suspect]
     Indication: DEMENTIA ALZHEIMER'S TYPE
     Dosage: SEE IMAGE
     Route: 048
     Dates: start: 20020418, end: 20020430
  2. ARICEPT [Suspect]
     Indication: DEMENTIA ALZHEIMER'S TYPE
     Dosage: SEE IMAGE
     Route: 048
     Dates: start: 20020501, end: 20041029
  3. BIOFERMIN (BIOFERMIN) [Concomitant]
  4. TANNALBIN (ALBUMIN TANNATE) [Concomitant]
  5. ANKISOL (AMBROXOL HYDROCHLORIDE) [Concomitant]
  6. CORTYZINE (PREDNISOLONE SODIUM TETRAHYDROPHTALATE) [Concomitant]

REACTIONS (5)
  - ARRHYTHMIA [None]
  - ATRIOVENTRICULAR BLOCK FIRST DEGREE [None]
  - SINUS ARREST [None]
  - SINUS BRADYCARDIA [None]
  - VOMITING [None]
